FAERS Safety Report 8862704 (Version 3)
Quarter: 2012Q4

REPORT INFORMATION
  Report Type: 
  Country: JP (occurrence: JP)
  Receive Date: 20121026
  Receipt Date: 20121115
  Transmission Date: 20130627
  Serious: Yes (Other)
  Sender: FDA-Public Use
  Company Number: JP-ABBOTT-12P-087-0995522-00

PATIENT
  Age: 59 Year
  Sex: Female

DRUGS (2)
  1. CLARITH [Suspect]
     Indication: MYCOPLASMA INFECTION
     Route: 048
     Dates: start: 20121001, end: 20121005
  2. BROCIN-CODEINE [Concomitant]
     Indication: PRODUCT USED FOR UNKNOWN INDICATION
     Route: 048
     Dates: end: 20121006

REACTIONS (3)
  - Swelling face [Recovered/Resolved]
  - Stomatitis [Recovered/Resolved]
  - Rash pruritic [Recovered/Resolved]
